FAERS Safety Report 7028918-4 (Version None)
Quarter: 2010Q4

REPORT INFORMATION
  Report Type: 
  Country: None (occurrence: None)
  Receive Date: 20101005
  Receipt Date: 20100923
  Transmission Date: 20110411
  Serious: Yes (Hospitalization, Other)
  Sender: FDA-Public Use
  Company Number: BR-PFIZER INC-2010122079

PATIENT
  Age: 84 Year
  Sex: Male
  Weight: 75 kg

DRUGS (10)
  1. GABAPENTIN [Suspect]
     Dosage: UNK
     Route: 048
     Dates: start: 20080101
  2. NORTRIPTYLINE [Suspect]
  3. MINIDIAB [Concomitant]
     Indication: DIABETES MELLITUS
     Dosage: UNK
     Dates: start: 20020101
  4. LASIX [Concomitant]
     Dosage: UNK
     Dates: start: 20020101
  5. CALCITRIOL [Concomitant]
     Indication: BLOOD PARATHYROID HORMONE
     Dosage: UNK
     Dates: start: 20100801
  6. CILOSTAZOL [Concomitant]
     Dosage: UNK
  7. ROSUVASTATIN CALCIUM [Concomitant]
     Indication: BLOOD CHOLESTEROL INCREASED
     Dosage: UNK
     Dates: start: 20080101
  8. SOMALGIN [Concomitant]
     Dosage: UNK
     Dates: start: 20020101
  9. SECOTEX [Concomitant]
     Dosage: UNK
     Dates: start: 20040101
  10. AVODART [Concomitant]
     Dosage: UNK
     Dates: start: 20040101

REACTIONS (4)
  - DYSKINESIA [None]
  - HALLUCINATION [None]
  - HERPES ZOSTER [None]
  - TRISMUS [None]
